FAERS Safety Report 24629091 (Version 2)
Quarter: 2025Q4

REPORT INFORMATION
  Report Type: Spontaneous
  Country: US (occurrence: US)
  Receive Date: 20241118
  Receipt Date: 20251118
  Transmission Date: 20260117
  Serious: No
  Sender: AUROBINDO
  Company Number: US-AUROBINDO-AUR-APL-2024-046721

PATIENT
  Age: 54 Year
  Sex: Female
  Weight: 44.45 kg

DRUGS (1)
  1. CLONAZEPAM [Suspect]
     Active Substance: CLONAZEPAM
     Indication: Product used for unknown indication
     Dosage: 1 MILLIGRAM 2 OR 3 TIMES A DAY
     Route: 065

REACTIONS (1)
  - Drug screen negative [Unknown]
